FAERS Safety Report 9503335 (Version 1)
Quarter: 2013Q3

REPORT INFORMATION
  Report Type: Spontaneous
  Country: GB (occurrence: GB)
  Receive Date: 20130906
  Receipt Date: 20130906
  Transmission Date: 20140515
  Serious: Yes (Other)
  Sender: FDA-Public Use
  Company Number: GB-PFIZER INC-2013254246

PATIENT
  Age: 7 Month
  Sex: Male

DRUGS (1)
  1. TAZOCIN [Suspect]
     Dosage: 5.8 G, 4X/DAY

REACTIONS (2)
  - Accidental overdose [Unknown]
  - Encephalopathy [Unknown]
